FAERS Safety Report 4905351-X (Version None)
Quarter: 2006Q1

REPORT INFORMATION
  Report Type: 
  Country: None (occurrence: None)
  Receive Date: 20060207
  Receipt Date: 20060207
  Transmission Date: 20060701
  Serious: No
  Sender: FDA-Public Use
  Company Number: None

PATIENT
  Sex: Female

DRUGS (1)
  1. KETOROLAC    30MG    HOSPIRA, INC [Suspect]
     Indication: SCAN
     Dosage: 15MG   OTO   IV
     Route: 042
     Dates: start: 20051208, end: 20051208

REACTIONS (3)
  - CONFUSIONAL STATE [None]
  - HALLUCINATION, AUDITORY [None]
  - PARANOIA [None]
